FAERS Safety Report 8136093-8 (Version None)
Quarter: 2012Q1

REPORT INFORMATION
  Report Type: 
  Country: None (occurrence: None)
  Receive Date: 20120214
  Receipt Date: 20111026
  Transmission Date: 20120608
  Serious: No
  Sender: FDA-Public Use
  Company Number: US-TYCO HEALTHCARE/MALLINCKRODT-T201101446

PATIENT
  Sex: Female
  Weight: 116.55 kg

DRUGS (9)
  1. LIDODERM [Concomitant]
     Dosage: 1 PATCH
     Dates: start: 20110715
  2. LEVOTHYROXINE SODIUM [Concomitant]
     Dosage: 175 ?G, QD IN AM
  3. MELOXICAM [Concomitant]
     Indication: PAIN
     Dosage: 15 MG, QD AT BEDTIME
  4. FENTANYL-100 [Suspect]
     Indication: PAIN
     Dosage: 75 UG/HR, Q 4 DAYS
     Route: 062
     Dates: start: 20110715, end: 20110701
  5. LIDODERM [Concomitant]
     Dosage: UNK, PRN
  6. LOSARTAN POTASSIUM AND HYDROCHLOROTHIAZIDE [Concomitant]
     Indication: HYPERTENSION
  7. GABAPENTIN [Concomitant]
     Indication: PAIN
     Dosage: 300 MG, QD AT BEDTIME
  8. FENTANYL [Concomitant]
     Dosage: 75 UG/HR, Q3-4 DAYS
     Dates: start: 20100101, end: 20110712
  9. OXYCODONE HCL [Concomitant]
     Indication: PAIN
     Dosage: 30 MG, TID PRN

REACTIONS (4)
  - DRUG INEFFECTIVE [None]
  - BLOOD PRESSURE INCREASED [None]
  - MIGRAINE [None]
  - BACK PAIN [None]
